FAERS Safety Report 5532533-9 (Version None)
Quarter: 2007Q4

REPORT INFORMATION
  Report Type: 
  Country: None (occurrence: None)
  Receive Date: 20071203
  Receipt Date: 20071126
  Transmission Date: 20080405
  Serious: No
  Sender: FDA-Public Use
  Company Number: US-BOEHRINGER INGELHEIM PHARMACEUTICALS, INC.-2007-BP-17803BP

PATIENT
  Sex: Female

DRUGS (4)
  1. SPIRIVA [Suspect]
     Indication: CHRONIC OBSTRUCTIVE PULMONARY DISEASE
     Route: 055
     Dates: start: 20070401
  2. SPIRIVA [Suspect]
     Indication: EMPHYSEMA
  3. ALBUTEROL [Concomitant]
  4. ASPIRIN [Concomitant]

REACTIONS (2)
  - DYSPNOEA [None]
  - THERAPEUTIC RESPONSE DECREASED [None]
